FAERS Safety Report 19992865 (Version 1)
Quarter: 2021Q4

REPORT INFORMATION
  Report Type: Spontaneous
  Country: FR (occurrence: FR)
  Receive Date: 20211025
  Receipt Date: 20211025
  Transmission Date: 20220303
  Serious: Yes (Other)
  Sender: FDA-Public Use
  Company Number: None

PATIENT
  Age: 38 Year
  Sex: Female
  Weight: 40 kg

DRUGS (1)
  1. LEVOFLOXACIN [Suspect]
     Active Substance: LEVOFLOXACIN
     Indication: Pyelonephritis
     Dosage: 1 DOSAGE FORM, QD (1 TABLET PER DAY)
     Route: 048
     Dates: start: 20210605, end: 20210609

REACTIONS (4)
  - Arthralgia [Recovering/Resolving]
  - Hallucination, visual [Recovering/Resolving]
  - Muscular weakness [Recovering/Resolving]
  - Tinnitus [Recovering/Resolving]

NARRATIVE: CASE EVENT DATE: 20210605
